FAERS Safety Report 7283522-8 (Version None)
Quarter: 2011Q1

REPORT INFORMATION
  Report Type: 
  Country: None (occurrence: None)
  Receive Date: 20110209
  Receipt Date: 20110127
  Transmission Date: 20110831
  Serious: Yes (Hospitalization)
  Sender: FDA-Public Use
  Company Number: AT-TEVA-265615ISR

PATIENT
  Sex: Male

DRUGS (4)
  1. DEXAMETHASONE [Suspect]
     Indication: MULTIPLE MYELOMA
     Dates: start: 20101201
  2. DEXAMETHASONE [Suspect]
     Dates: start: 20101229
  3. LENALIDOMIDE [Suspect]
     Indication: MULTIPLE MYELOMA
     Route: 048
     Dates: start: 20101201, end: 20100101
  4. LENALIDOMIDE [Suspect]
     Route: 048
     Dates: start: 20101229, end: 20110111

REACTIONS (2)
  - TRANSIENT ISCHAEMIC ATTACK [None]
  - PYREXIA [None]
